FAERS Safety Report 6061513-2 (Version None)
Quarter: 2009Q1

REPORT INFORMATION
  Report Type: 
  Country: None (occurrence: None)
  Receive Date: 20090202
  Receipt Date: 20090120
  Transmission Date: 20090719
  Serious: Yes (Hospitalization)
  Sender: FDA-Public Use
  Company Number: BE-ROCHE-609195

PATIENT
  Sex: Male
  Weight: 79 kg

DRUGS (5)
  1. CAPECITABINE [Suspect]
     Route: 048
     Dates: start: 20080602, end: 20081023
  2. CAPECITABINE [Suspect]
     Route: 048
     Dates: start: 20081107
  3. CAPECITABINE [Suspect]
     Dosage: STRENGTH AND FORMULATION: 1000 MG
     Route: 048
     Dates: start: 20081229
  4. ELOXATIN [Concomitant]
     Route: 042
     Dates: start: 20081210, end: 20081226
  5. CAMPTOSAR [Concomitant]
     Route: 042
     Dates: start: 20090121

REACTIONS (2)
  - COLONIC OBSTRUCTION [None]
  - PALMAR-PLANTAR ERYTHRODYSAESTHESIA SYNDROME [None]
